FAERS Safety Report 13611902 (Version 1)
Quarter: 2017Q2

REPORT INFORMATION
  Report Type: Spontaneous
  Country: US (occurrence: US)
  Receive Date: 20170605
  Receipt Date: 20170605
  Transmission Date: 20170830
  Serious: Yes (Other)
  Sender: FDA-Public Use
  Company Number: US-ROCHE-1939093

PATIENT
  Sex: Female
  Weight: 82.95 kg

DRUGS (15)
  1. RITUXAN [Suspect]
     Active Substance: RITUXIMAB
     Indication: RHEUMATOID ARTHRITIS
     Route: 065
  2. ADVAIR HFA [Concomitant]
     Active Substance: FLUTICASONE PROPIONATE\SALMETEROL XINAFOATE
  3. REMICADE [Concomitant]
     Active Substance: INFLIXIMAB
     Indication: CROHN^S DISEASE
     Route: 065
  4. CELEBREX [Concomitant]
     Active Substance: CELECOXIB
  5. AMPICILLIN [Concomitant]
     Active Substance: AMPICILLIN
  6. CORTISONE [Concomitant]
     Active Substance: CORTISONE\HYDROCORTISONE
  7. HUMIRA [Concomitant]
     Active Substance: ADALIMUMAB
  8. XELJANZ [Suspect]
     Active Substance: TOFACITINIB CITRATE
     Indication: RHEUMATOID ARTHRITIS
     Route: 048
  9. METHOTREXATE. [Concomitant]
     Active Substance: METHOTREXATE
  10. AUGMENTIN [Concomitant]
     Active Substance: AMOXICILLIN\CLAVULANATE POTASSIUM
  11. MORPHINE SULFATE. [Concomitant]
     Active Substance: MORPHINE SULFATE
  12. PREDNISONE. [Concomitant]
     Active Substance: PREDNISONE
     Route: 065
  13. ENBREL [Concomitant]
     Active Substance: ETANERCEPT
  14. GABAPENTIN. [Concomitant]
     Active Substance: GABAPENTIN
  15. SERTRALINE [Concomitant]
     Active Substance: SERTRALINE HYDROCHLORIDE
     Route: 065
     Dates: start: 2006

REACTIONS (19)
  - Muscular weakness [Unknown]
  - Dyspnoea exertional [Unknown]
  - Alopecia [Unknown]
  - Anger [Unknown]
  - Arthralgia [Unknown]
  - Nasal dryness [Unknown]
  - Eye pruritus [Unknown]
  - Fatigue [Unknown]
  - Polydipsia [Unknown]
  - Amnesia [Unknown]
  - Dizziness [Unknown]
  - Constipation [Unknown]
  - Vulvovaginal dryness [Unknown]
  - Increased tendency to bruise [Unknown]
  - Dry mouth [Unknown]
  - Agitation [Unknown]
  - Musculoskeletal pain [Unknown]
  - Wheezing [Unknown]
  - Erythema [Unknown]
